FAERS Safety Report 9373399 (Version 1)
Quarter: 2013Q2

REPORT INFORMATION
  Report Type: Spontaneous
  Country: US (occurrence: US)
  Receive Date: 20130627
  Receipt Date: 20130627
  Transmission Date: 20140414
  Serious: Yes (Hospitalization, Disabling, Other)
  Sender: FDA-Public Use
  Company Number: US-009507513-1107USA03695

PATIENT
  Sex: Female
  Weight: 65.95 kg

DRUGS (12)
  1. FOSAMAX [Suspect]
     Indication: OSTEOPOROSIS
     Dosage: 70 MG, QW
     Route: 048
     Dates: start: 20010412, end: 2007
  2. FOSAMAX [Suspect]
     Indication: OSTEOPENIA
  3. FOSAMAX [Suspect]
     Indication: OSTEOPOROSIS
     Dosage: 35 MG, UNK
     Route: 048
     Dates: start: 20090319, end: 20090511
  4. FOSAMAX [Suspect]
     Indication: OSTEOPENIA
     Dosage: 70 MG, QW
     Route: 048
     Dates: start: 20080312
  5. BONIVA [Suspect]
     Indication: OSTEOPOROSIS
     Dosage: 150 MG, QM
     Route: 048
     Dates: start: 20051129
  6. BONIVA [Suspect]
     Indication: OSTEOPENIA
  7. LEVOTIROXINA S.O [Concomitant]
     Dates: start: 1990
  8. LEVOTHROID [Concomitant]
     Dosage: UNK UNK, QD
  9. MK-9278 [Concomitant]
     Dosage: UNK UNK, QD
  10. BLACK COHOSH [Concomitant]
  11. POTASSIUM (UNSPECIFIED) [Concomitant]
  12. CALCIUM (UNSPECIFIED) [Concomitant]
     Dosage: 1200 MEQ, UNK

REACTIONS (74)
  - Loss of consciousness [Unknown]
  - Pancreatitis [Unknown]
  - Anaemia [Unknown]
  - Pancreatitis acute [Unknown]
  - Hypoacusis [Unknown]
  - Gastrointestinal haemorrhage [Unknown]
  - Pernicious anaemia [Unknown]
  - Syncope [Unknown]
  - Jaw operation [Unknown]
  - Jaw disorder [Unknown]
  - Osteonecrosis of jaw [Not Recovered/Not Resolved]
  - Osteomyelitis [Unknown]
  - Gastric ulcer [Unknown]
  - Dental caries [Unknown]
  - Tooth loss [Unknown]
  - Tooth disorder [Unknown]
  - Jaw fracture [Unknown]
  - Impaired healing [Unknown]
  - Gingival disorder [Unknown]
  - Gingival infection [Unknown]
  - Mycobacterium abscessus infection [Unknown]
  - Oral disorder [Unknown]
  - Oral disorder [Unknown]
  - Oral disorder [Unknown]
  - Oral disorder [Unknown]
  - Oral disorder [Unknown]
  - Tooth disorder [Unknown]
  - Tooth disorder [Unknown]
  - Oral disorder [Unknown]
  - Oral disorder [Unknown]
  - Jaw disorder [Unknown]
  - Haemorrhoids [Unknown]
  - Incisional hernia [Unknown]
  - Breast mass [Unknown]
  - Osteoarthritis [Not Recovered/Not Resolved]
  - Depression [Unknown]
  - Poor quality sleep [Unknown]
  - Visual acuity reduced [Unknown]
  - Hypotension [Unknown]
  - Periodontitis [Unknown]
  - Poor dental condition [Unknown]
  - Tooth disorder [Unknown]
  - Pain [Unknown]
  - Pain [Unknown]
  - Restless legs syndrome [Unknown]
  - Fatigue [Unknown]
  - Eye disorder [Unknown]
  - Visual impairment [Unknown]
  - Urinary tract infection [Unknown]
  - Peptic ulcer [Unknown]
  - Intention tremor [Unknown]
  - Vitamin D deficiency [Unknown]
  - Impaired healing [Unknown]
  - Heat stroke [Unknown]
  - Somnolence [Unknown]
  - Hypertension [Unknown]
  - Abscess [Unknown]
  - Abnormal loss of weight [Recovered/Resolved]
  - Cough [Unknown]
  - Fistula discharge [Unknown]
  - Oral disorder [Unknown]
  - Dyspnoea [Unknown]
  - Hyperglycaemia [Unknown]
  - Ulcer [Unknown]
  - Chest pain [Recovered/Resolved]
  - Lymphadenopathy [Unknown]
  - Iron deficiency anaemia [Unknown]
  - Gastrointestinal haemorrhage [Unknown]
  - Malaise [Unknown]
  - Diarrhoea [Unknown]
  - Headache [Not Recovered/Not Resolved]
  - Nausea [Unknown]
  - Gastritis [Unknown]
  - Gastrooesophageal reflux disease [Unknown]
